FAERS Safety Report 20726591 (Version 1)
Quarter: 2022Q2

REPORT INFORMATION
  Report Type: Report from Study
  Country: US (occurrence: US)
  Receive Date: 20220419
  Receipt Date: 20220419
  Transmission Date: 20220721
  Serious: Yes (Hospitalization)
  Sender: FDA-Public Use
  Company Number: US-JAZZ-2021-US-022245

PATIENT
  Sex: Female

DRUGS (8)
  1. XYREM [Suspect]
     Active Substance: SODIUM OXYBATE
     Indication: Narcolepsy
     Dosage: 4.5 GRAM, BID
     Route: 048
     Dates: start: 200601, end: 200606
  2. XYREM [Suspect]
     Active Substance: SODIUM OXYBATE
     Indication: Cataplexy
     Dosage: DOE ADJUSTMENT
     Route: 048
     Dates: start: 200610, end: 200704
  3. XYREM [Suspect]
     Active Substance: SODIUM OXYBATE
     Indication: Somnolence
     Dosage: 4.5 GRAM, BID
     Route: 048
     Dates: start: 200705, end: 202111
  4. LISINOPRIL [Concomitant]
     Active Substance: LISINOPRIL
     Dosage: 0020
     Dates: start: 20151029
  5. TENORMIN [Concomitant]
     Active Substance: ATENOLOL
     Dosage: 0040
     Dates: start: 20151029
  6. RESTASIS [Concomitant]
     Active Substance: CYCLOSPORINE
     Dosage: 0000
     Dates: start: 20151029
  7. OXYCODONE HYDROCHLORIDE [Concomitant]
     Active Substance: OXYCODONE HYDROCHLORIDE
  8. ALPRAZOLAM [Concomitant]
     Active Substance: ALPRAZOLAM

REACTIONS (1)
  - Hypertension [Unknown]
